FAERS Safety Report 17804840 (Version 2)
Quarter: 2020Q2

REPORT INFORMATION
  Report Type: Spontaneous
  Country: MY (occurrence: MY)
  Receive Date: 20200520
  Receipt Date: 20200522
  Transmission Date: 20200714
  Serious: Yes (Death, Life-Threatening, Hospitalization, Other)
  Sender: FDA-Public Use
  Company Number: MY-AUROBINDO-AUR-APL-2020-025346

PATIENT
  Age: 96 Year
  Sex: Male

DRUGS (2)
  1. KARDAM (AMLODIPINE) [Suspect]
     Active Substance: AMLODIPINE BESYLATE
     Indication: HYPERTENSION
     Dosage: UNK
     Route: 048
  2. BISOPROLOL [Suspect]
     Active Substance: BISOPROLOL
     Indication: HYPERTENSION
     Dosage: UNK
     Route: 048

REACTIONS (11)
  - Defect conduction intraventricular [Fatal]
  - Heart rate decreased [Fatal]
  - Confusional state [Fatal]
  - Sinus bradycardia [Fatal]
  - Hypotension [Fatal]
  - Peripheral coldness [Fatal]
  - Pulse volume decreased [Fatal]
  - Accidental overdose [Fatal]
  - Toxicity to various agents [Unknown]
  - Dizziness [Fatal]
  - Tachypnoea [Fatal]
